FAERS Safety Report 7746247-8 (Version None)
Quarter: 2011Q3

REPORT INFORMATION
  Report Type: 
  Country: None (occurrence: None)
  Receive Date: 20110913
  Receipt Date: 20110906
  Transmission Date: 20111222
  Serious: Yes (Hospitalization)
  Sender: FDA-Public Use
  Company Number: FR-BRISTOL-MYERS SQUIBB COMPANY-16034043

PATIENT
  Age: 48 Year
  Sex: Female

DRUGS (5)
  1. RITUXIMAB [Suspect]
     Indication: B-CELL LYMPHOMA
     Dosage: RECEIVED THROUGH IMPLANTED CENTRAL VENOUS PORT DAYS 1-5 CYCLE 3, DAY 8
     Dates: start: 20081001
  2. CYCLOPHOSPHAMIDE [Suspect]
     Indication: B-CELL LYMPHOMA
     Dosage: RECEIVED THROUGH IMPLANTED CENTRAL VENOUS PORT DAYS 1-5 CYCLE 3, DAY 8
     Dates: start: 20081001
  3. DOXORUBICIN HCL [Suspect]
     Indication: B-CELL LYMPHOMA
     Dosage: RECEIVED THROUGH IMPLANTED CENTRAL VENOUS PORT DAYS 1-5 CYCLE 3, DAY 8
     Dates: start: 20081001
  4. VINCRISTINE [Suspect]
     Indication: B-CELL LYMPHOMA
     Dosage: RECEIVED THROUGH IMPLANTED CENTRAL VENOUS PORT DAYS 1-5 CYCLE 3, DAY 8
     Dates: start: 20081001
  5. PREDNISOLONE [Suspect]
     Indication: B-CELL LYMPHOMA
     Dosage: RECEIVED THROUGH IMPLANTED CENTRAL VENOUS PORT DAYS 1-5 CYCLE 3, DAY 8
     Dates: start: 20081001

REACTIONS (3)
  - PULMONARY NECROSIS [None]
  - PANCYTOPENIA [None]
  - ESCHERICHIA INFECTION [None]
